FAERS Safety Report 22267349 (Version 4)
Quarter: 2025Q1

REPORT INFORMATION
  Report Type: Spontaneous
  Country: US (occurrence: US)
  Receive Date: 20230428
  Receipt Date: 20250310
  Transmission Date: 20250409
  Serious: Yes (Other)
  Sender: PFIZER
  Company Number: US-PFIZER INC-202300171891

PATIENT
  Age: 54 Year
  Sex: Male
  Weight: 81.633 kg

DRUGS (15)
  1. INLYTA [Suspect]
     Active Substance: AXITINIB
     Indication: Renal cell carcinoma stage IV
     Dosage: 5 MG, 2X/DAY (EVERY 12 HOURS)
     Route: 048
     Dates: start: 20230405
  2. INLYTA [Suspect]
     Active Substance: AXITINIB
     Dosage: TAKE 3 TABLETS TWICE A DAY
  3. INLYTA [Suspect]
     Active Substance: AXITINIB
     Dosage: 4 MG, DAILY
  4. INLYTA [Suspect]
     Active Substance: AXITINIB
     Dosage: 2 MG BY MOUTH EVERY 12 HOURS
     Route: 048
  5. KEYTRUDA [Concomitant]
     Active Substance: PEMBROLIZUMAB
  6. AMBIEN [Concomitant]
     Active Substance: ZOLPIDEM TARTRATE
  7. HYDROCHLOROTHIAZIDE [Concomitant]
     Active Substance: HYDROCHLOROTHIAZIDE
  8. BENICAR [Concomitant]
     Active Substance: OLMESARTAN MEDOXOMIL
  9. FOLIC ACID [Concomitant]
     Active Substance: FOLIC ACID
  10. CYCLOBENZAPRINE [Concomitant]
     Active Substance: CYCLOBENZAPRINE
  11. STOOL SOFTENER (DOCUSATE) [Concomitant]
     Active Substance: DOCUSATE
  12. MIRALAX [Concomitant]
     Active Substance: POLYETHYLENE GLYCOL 3350
  13. IRONUP [Concomitant]
  14. CLONIDINE [Concomitant]
     Active Substance: CLONIDINE
  15. ZANAFLEX [Concomitant]
     Active Substance: TIZANIDINE HYDROCHLORIDE

REACTIONS (6)
  - Renal cell carcinoma stage IV [Unknown]
  - Malignant neoplasm progression [Unknown]
  - Oral pain [Not Recovered/Not Resolved]
  - Pain [Not Recovered/Not Resolved]
  - Myalgia [Not Recovered/Not Resolved]
  - Muscle spasms [Not Recovered/Not Resolved]

NARRATIVE: CASE EVENT DATE: 20230101
